FAERS Safety Report 6805798-0 (Version None)
Quarter: 2010Q2

REPORT INFORMATION
  Report Type: 
  Country: None (occurrence: None)
  Receive Date: 20100629
  Receipt Date: 20071025
  Transmission Date: 20101027
  Serious: Yes (Other)
  Sender: FDA-Public Use
  Company Number: US-PFIZER INC-2007086977

PATIENT
  Sex: Male
  Weight: 100 kg

DRUGS (7)
  1. TIKOSYN [Suspect]
     Indication: ATRIAL FIBRILLATION
     Dates: start: 20071009
  2. TOPROL-XL [Concomitant]
     Dosage: TWICE A DAY
  3. DILTIAZEM [Concomitant]
  4. LISINOPRIL [Concomitant]
  5. NEXIUM [Concomitant]
  6. PROSCAR [Concomitant]
  7. ATIVAN [Concomitant]

REACTIONS (1)
  - ATRIAL FIBRILLATION [None]
